FAERS Safety Report 7907145-X (Version None)
Quarter: 2011Q4

REPORT INFORMATION
  Report Type: 
  Country: None (occurrence: None)
  Receive Date: 20111110
  Receipt Date: 20111108
  Transmission Date: 20120403
  Serious: Yes (Hospitalization)
  Sender: FDA-Public Use
  Company Number: IT-BAYER-2011-108326

PATIENT
  Age: 19 Year
  Sex: Male

DRUGS (4)
  1. FOLIC ACID [Concomitant]
     Dosage: DAILY DOSE 1 DF
     Route: 048
  2. PANTOPRAZOLE [Concomitant]
     Dosage: DAILY DOSE 40 MG
     Route: 048
  3. SODIUM FERRIC GLUCONATE COMPLEX [Concomitant]
     Dosage: DAILY DOSE 62.5 MG
     Route: 042
  4. KOGENATE [Suspect]
     Indication: FACTOR VIII DEFICIENCY
     Dosage: 2000 IU, ONCE
     Route: 042
     Dates: start: 20111029, end: 20111029

REACTIONS (8)
  - PULSE ABSENT [None]
  - THROAT IRRITATION [None]
  - ANAPHYLACTIC SHOCK [None]
  - TACHYCARDIA [None]
  - LOSS OF CONSCIOUSNESS [None]
  - HYPOTENSION [None]
  - HYPERHIDROSIS [None]
  - CHEST PAIN [None]
